FAERS Safety Report 8514288-9 (Version None)
Quarter: 2012Q3

REPORT INFORMATION
  Report Type: 
  Country: None (occurrence: None)
  Receive Date: 20120717
  Receipt Date: 20120709
  Transmission Date: 20120928
  Serious: Yes (Death, Other)
  Sender: FDA-Public Use
  Company Number: FR-JNJFOC-20120700031

PATIENT
  Age: 50 Year
  Sex: Female

DRUGS (6)
  1. DURAGESIC-100 [Suspect]
     Indication: PRODUCT USED FOR UNKNOWN INDICATION
     Dosage: 11 PATCHES AT ONCE-100 UG/HR
     Route: 062
  2. THIOPENTAL SODIUM [Suspect]
     Indication: PRODUCT USED FOR UNKNOWN INDICATION
     Route: 042
  3. ZOLPIDEM [Suspect]
     Indication: PRODUCT USED FOR UNKNOWN INDICATION
     Route: 065
  4. MIDAZOLAM HCL [Interacting]
     Indication: PRODUCT USED FOR UNKNOWN INDICATION
     Route: 054
  5. PHENOBARBITAL TAB [Suspect]
     Indication: PRODUCT USED FOR UNKNOWN INDICATION
     Route: 065
  6. ALCOHOL [Suspect]
     Indication: PRODUCT USED FOR UNKNOWN INDICATION
     Dosage: 0.65 G/L
     Route: 065

REACTIONS (8)
  - DRUG INTERACTION [None]
  - CONJUNCTIVAL HYPERAEMIA [None]
  - MOUTH HAEMORRHAGE [None]
  - DRUG ADMINISTERED AT INAPPROPRIATE SITE [None]
  - OVERDOSE [None]
  - EPISTAXIS [None]
  - TOXICITY TO VARIOUS AGENTS [None]
  - ASPHYXIA [None]
